FAERS Safety Report 8046909-1 (Version None)
Quarter: 2012Q1

REPORT INFORMATION
  Report Type: 
  Country: None (occurrence: None)
  Receive Date: 20120116
  Receipt Date: 20120104
  Transmission Date: 20120608
  Serious: Yes (Hospitalization)
  Sender: FDA-Public Use
  Company Number: US-ELI_LILLY_AND_COMPANY-US201201001613

PATIENT
  Sex: Male

DRUGS (13)
  1. VITAMIN D [Concomitant]
  2. DILTIAZEM HCL [Concomitant]
  3. LEVOXYL [Concomitant]
  4. FOLIC ACID [Concomitant]
  5. ACID REDUCER [Concomitant]
  6. ASPIRIN [Concomitant]
  7. VITAMIN C [Concomitant]
  8. FORTEO [Suspect]
     Indication: OSTEOPOROSIS
     Dosage: 20 UG, QD
     Route: 065
     Dates: start: 20091101
  9. MATURE MULTIVITAMINS [Concomitant]
  10. IRON [Concomitant]
  11. LOVAZA [Concomitant]
  12. ZINC [Concomitant]
  13. LIPITOR [Concomitant]

REACTIONS (3)
  - HERPES VIRUS INFECTION [None]
  - IMMUNOSUPPRESSION [None]
  - TESTICULAR PAIN [None]
